FAERS Safety Report 8512036-X (Version None)
Quarter: 2012Q3

REPORT INFORMATION
  Report Type: 
  Country: None (occurrence: None)
  Receive Date: 20120716
  Receipt Date: 20120703
  Transmission Date: 20120928
  Serious: No
  Sender: FDA-Public Use
  Company Number: US-009507513-1207USA000859

PATIENT

DRUGS (6)
  1. NASONEX [Suspect]
     Indication: HYPERSENSITIVITY
     Dosage: UNK, UNKNOWN
  2. CLARITIN [Suspect]
     Dosage: UNK, UNKNOWN
  3. PEPCID [Suspect]
     Dosage: UNK, UNKNOWN
  4. VALIUM [Concomitant]
     Dosage: UNK, UNKNOWN
  5. ZYRTEC [Suspect]
  6. TOPAMAX [Concomitant]
     Dosage: UNK, UNKNOWN

REACTIONS (1)
  - MIGRAINE [None]
